FAERS Safety Report 6342968-2 (Version None)
Quarter: 2009Q3

REPORT INFORMATION
  Report Type: 
  Country: None (occurrence: None)
  Receive Date: 20090908
  Receipt Date: 20090901
  Transmission Date: 20100115
  Serious: Yes (Hospitalization)
  Sender: FDA-Public Use
  Company Number: FR-JNJFOC-20090500940

PATIENT
  Sex: Male
  Weight: 13 kg

DRUGS (5)
  1. IMODIUM [Suspect]
     Route: 048
  2. IMODIUM [Suspect]
     Indication: DIARRHOEA
     Route: 048
  3. DEBRIDAT [Concomitant]
     Indication: GASTROENTERITIS
  4. METOCLOPRAMIDE [Concomitant]
     Indication: GASTROENTERITIS
  5. DOLIPRANE [Concomitant]
     Indication: GASTROENTERITIS

REACTIONS (3)
  - DEHYDRATION [None]
  - MEDICATION ERROR [None]
  - WEIGHT DECREASED [None]
